FAERS Safety Report 10049806 (Version 2)
Quarter: 2014Q2

REPORT INFORMATION
  Report Type: Report from Study
  Country: DE (occurrence: DE)
  Receive Date: 20140401
  Receipt Date: 20140509
  Transmission Date: 20141212
  Serious: No
  Sender: FDA-Public Use
  Company Number: DE-BEH-2014041461

PATIENT
  Age: 32 Year
  Sex: Female
  Weight: 53 kg

DRUGS (8)
  1. PRIVIGEN [Suspect]
     Dosage: INFUSION RATE MINIMAL: 0.8 ML/MIN, INFUSION RATE MAXIMAL: 4 ML/ MIN
     Dates: start: 20100412, end: 20100412
  2. PRIVIGEN [Suspect]
     Dosage: INFUSION RATE MINIMAL: 0.8 ML/ MIN, INFUSION RATE MAXIMAL 4 ML/ MIN
     Dates: start: 20100519, end: 20100519
  3. PRIVIGEN [Suspect]
     Dosage: INFUSION RATE MINIMAL: 0.8 ML/ MIN, INFUSION RATE MAXIMAL: 4 ML/ MIN
     Dates: start: 20100528, end: 20100528
  4. PRIVIGEN [Suspect]
     Indication: HABITUAL ABORTION
     Dosage: INFUSION RATE MINIMUM: 30 ML/ MIN, INFUSION RATE MAXIMUM 50 ML / MIN
     Dates: start: 20100701, end: 20100701
  5. PRIVIGEN [Suspect]
     Dosage: INFUSION RATE MINIMUM: 30 ML/ MIN, INFUSION RATE MAXIMUM 50 ML / MIN
     Dates: start: 20100701, end: 20100701
  6. HAEMATE P [Concomitant]
  7. FIBROGAMMIN P [Concomitant]
  8. FEMIBION [Concomitant]

REACTIONS (1)
  - Genital infection female [Recovered/Resolved]
